FAERS Safety Report 25465429 (Version 3)
Quarter: 2025Q3

REPORT INFORMATION
  Report Type: Spontaneous
  Country: US (occurrence: US)
  Receive Date: 20250623
  Receipt Date: 20250714
  Transmission Date: 20251020
  Serious: No
  Sender: PIRAMAL
  Company Number: US-PCCINC-2025-PPL-000371

PATIENT

DRUGS (1)
  1. GABLOFEN [Suspect]
     Active Substance: BACLOFEN
     Indication: Muscle spasticity
     Route: 037

REACTIONS (1)
  - Loss of therapeutic response [Unknown]
